FAERS Safety Report 4637753-3 (Version None)
Quarter: 2005Q2

REPORT INFORMATION
  Report Type: 
  Country: None (occurrence: None)
  Receive Date: 20050328
  Receipt Date: 20041213
  Transmission Date: 20051028
  Serious: No
  Sender: FDA-Public Use
  Company Number: USA041286060

PATIENT
  Age: 13 Year
  Sex: Male

DRUGS (2)
  1. STRATTERA [Suspect]
     Dosage: 60 MG DAY
     Dates: start: 20040401
  2. CELEXA [Concomitant]

REACTIONS (1)
  - IMPULSIVE BEHAVIOUR [None]
